FAERS Safety Report 4658115-9 (Version None)
Quarter: 2005Q2

REPORT INFORMATION
  Report Type: 
  Country: None (occurrence: None)
  Receive Date: 20050504
  Receipt Date: 20040617
  Transmission Date: 20051028
  Serious: Yes (Disabling)
  Sender: FDA-Public Use
  Company Number: PHEH2004US04685

PATIENT
  Age: 71 Year
  Sex: Female
  Weight: 63.5 kg

DRUGS (3)
  1. DIOVAN HCT [Suspect]
     Indication: HYPERTENSION
     Dosage: SEE IMAGE
     Route: 048
  2. TOPROL-XL [Concomitant]
  3. PRAVACHOL [Concomitant]

REACTIONS (1)
  - VASCULITIS [None]
